FAERS Safety Report 12331023 (Version 2)
Quarter: 2016Q2

REPORT INFORMATION
  Report Type: Report from Study
  Country: US (occurrence: US)
  Receive Date: 20160504
  Receipt Date: 20160606
  Transmission Date: 20160815
  Serious: Yes (Death, Other)
  Sender: FDA-Public Use
  Company Number: US-TAIHO ONCOLOGY INC-EU-2016-00854

PATIENT
  Age: 72 Year
  Sex: Female

DRUGS (1)
  1. LONSURF [Suspect]
     Active Substance: TIPIRACIL HYDROCHLORIDE\TRIFLURIDINE
     Indication: COLORECTAL CANCER METASTATIC
     Dosage: CYCLE 1
     Route: 048
     Dates: start: 20160301

REACTIONS (6)
  - Respiratory failure [Fatal]
  - Cardiac failure congestive [Unknown]
  - Renal failure [Unknown]
  - Pneumonia [Unknown]
  - Atrial fibrillation [Unknown]
  - Failure to thrive [Unknown]

NARRATIVE: CASE EVENT DATE: 2016
